FAERS Safety Report 18319567 (Version 1)
Quarter: 2020Q3

REPORT INFORMATION
  Report Type: Spontaneous
  Country: US (occurrence: US)
  Receive Date: 20200928
  Receipt Date: 20200928
  Transmission Date: 20201103
  Serious: No
  Sender: FDA-Public Use
  Company Number: US-TORRENT-00010433

PATIENT
  Age: 40 Year
  Sex: Female
  Weight: 61 kg

DRUGS (3)
  1. LAMOTRIGINE IR [Concomitant]
     Indication: MOOD ALTERED
     Dosage: IMMEDIATE RELEASE
  2. LAMOTRIGINE EXTENDED?RELEASE TABLETS [Suspect]
     Active Substance: LAMOTRIGINE
     Indication: MOOD ALTERED
     Dosage: 50 MG ONCE A DAY BY MOUTH
     Dates: start: 20200812
  3. ADDERALL [Concomitant]
     Active Substance: AMPHETAMINE ASPARTATE\AMPHETAMINE SULFATE\DEXTROAMPHETAMINE SACCHARATE\DEXTROAMPHETAMINE SULFATE
     Indication: PRODUCT USED FOR UNKNOWN INDICATION
     Dosage: UNKNOWN

REACTIONS (2)
  - Product substitution issue [Unknown]
  - Pruritus [Unknown]

NARRATIVE: CASE EVENT DATE: 20200812
